FAERS Safety Report 7115368-5 (Version None)
Quarter: 2010Q4

REPORT INFORMATION
  Report Type: 
  Country: None (occurrence: None)
  Receive Date: 20101116
  Receipt Date: 20101116
  Transmission Date: 20110411
  Serious: Yes (Other)
  Sender: FDA-Public Use
  Company Number: None

PATIENT
  Age: 52 Year
  Sex: Male

DRUGS (1)
  1. LANTUS SOLOSTAR AVENTIS [Suspect]
     Dosage: SUBCUTANEOUSLY TWICE DAILY
     Route: 058

REACTIONS (1)
  - DEVICE FAILURE [None]
